FAERS Safety Report 5464595-1 (Version None)
Quarter: 2007Q3

REPORT INFORMATION
  Report Type: 
  Country: None (occurrence: None)
  Receive Date: 20070820
  Receipt Date: 20070516
  Transmission Date: 20080115
  Serious: No
  Sender: FDA-Public Use
  Company Number: WAES 0705USA03039

PATIENT
  Age: 70 Year
  Sex: Male

DRUGS (5)
  1. JANUVIA [Suspect]
     Indication: TYPE 2 DIABETES MELLITUS
     Dosage: 100 MG/DAILY/PO
     Route: 048
     Dates: start: 20070201
  2. ALTACE [Concomitant]
  3. AVANDIA [Concomitant]
  4. LIPITOR [Concomitant]
  5. METFORMIN [Concomitant]

REACTIONS (3)
  - LYMPHADENOPATHY [None]
  - SINUSITIS [None]
  - TRACHEITIS [None]
